FAERS Safety Report 12925102 (Version 1)
Quarter: 2016Q4

REPORT INFORMATION
  Report Type: Spontaneous
  Country: US (occurrence: US)
  Receive Date: 20161108
  Receipt Date: 20161108
  Transmission Date: 20170207
  Serious: Yes (Hospitalization)
  Sender: FDA-Public Use
  Company Number: US-B.I. PHARMACEUTICALS,INC./RIDGEFIELD-2016-BI-068953

PATIENT
  Sex: Female

DRUGS (1)
  1. ZANTAC [Suspect]
     Active Substance: RANITIDINE HYDROCHLORIDE
     Indication: GASTROOESOPHAGEAL REFLUX DISEASE
     Route: 048
     Dates: start: 2011

REACTIONS (6)
  - Hernia [Unknown]
  - Constipation [Recovered/Resolved]
  - Off label use [Unknown]
  - Nausea [Unknown]
  - Abdominal pain upper [Unknown]
  - Medication error [Unknown]

NARRATIVE: CASE EVENT DATE: 2011
